FAERS Safety Report 7088390-5 (Version None)
Quarter: 2010Q4

REPORT INFORMATION
  Report Type: 
  Country: None (occurrence: None)
  Receive Date: 20101029
  Receipt Date: 20101018
  Transmission Date: 20110411
  Serious: Yes (Life-Threatening, Hospitalization, Other)
  Sender: FDA-Public Use
  Company Number: ACO_02234_2010

PATIENT
  Sex: Male
  Weight: 89.3586 kg

DRUGS (10)
  1. AMPYRA [Suspect]
     Indication: GAIT DISTURBANCE
     Dosage: (10 MG BID ORAL), (10 MG QD ORAL)
     Route: 048
     Dates: start: 20100602, end: 20100601
  2. AMPYRA [Suspect]
     Indication: GAIT DISTURBANCE
     Dosage: (10 MG BID ORAL), (10 MG QD ORAL)
     Route: 048
     Dates: start: 20100601, end: 20100628
  3. AVALIDE [Concomitant]
  4. BACLOFEN [Concomitant]
  5. TIZANIDINE HCL [Concomitant]
  6. NORTRIPTYLINE HCL [Concomitant]
  7. ASPIRIN [Concomitant]
  8. CALCIUM [Concomitant]
  9. FISH OIL [Concomitant]
  10. VITAMIN E /00110501/ [Concomitant]

REACTIONS (7)
  - ASTHENIA [None]
  - DYSARTHRIA [None]
  - FEELING ABNORMAL [None]
  - INSOMNIA [None]
  - MALAISE [None]
  - PNEUMONIA ASPIRATION [None]
  - PYREXIA [None]
